FAERS Safety Report 4882090-5 (Version None)
Quarter: 2006Q1

REPORT INFORMATION
  Report Type: 
  Country: None (occurrence: None)
  Receive Date: 20060117
  Receipt Date: 20050727
  Transmission Date: 20060701
  Serious: Yes (Hospitalization)
  Sender: FDA-Public Use
  Company Number: US-MERCK-0507USA04246

PATIENT
  Age: 73 Year
  Sex: Male
  Weight: 86 kg

DRUGS (3)
  1. VIOXX [Suspect]
     Indication: BACK PAIN
     Route: 048
     Dates: start: 19990501, end: 20040901
  2. PREVACID [Concomitant]
     Route: 065
  3. ALLOPURINOL [Concomitant]
     Route: 065

REACTIONS (14)
  - ANTITHROMBIN III DEFICIENCY [None]
  - DEEP VEIN THROMBOSIS [None]
  - DEHYDRATION [None]
  - FACTOR V LEIDEN MUTATION [None]
  - GASTROOESOPHAGEAL REFLUX DISEASE [None]
  - GOUTY ARTHRITIS [None]
  - HYPERCOAGULATION [None]
  - INTERVERTEBRAL DISC DEGENERATION [None]
  - KIDNEY INFECTION [None]
  - PNEUMONITIS [None]
  - POLYP COLORECTAL [None]
  - PULMONARY EMBOLISM [None]
  - SPINAL DISORDER [None]
  - THROMBOPHLEBITIS [None]
